FAERS Safety Report 24204490 (Version 2)
Quarter: 2024Q3

REPORT INFORMATION
  Report Type: Report from Study
  Country: US (occurrence: US)
  Receive Date: 20240813
  Receipt Date: 20240821
  Transmission Date: 20241016
  Serious: Yes (Hospitalization, Other)
  Sender: ABBVIE
  Company Number: US-ABBVIE-5871847

PATIENT
  Age: 70 Year
  Sex: Male
  Weight: 127 kg

DRUGS (1)
  1. RINVOQ [Suspect]
     Active Substance: UPADACITINIB
     Indication: Rheumatoid arthritis
     Dosage: FORM STRENGTH: 15 MG
     Route: 048
     Dates: start: 20210915

REACTIONS (6)
  - Arterial therapeutic procedure [Recovered/Resolved]
  - Musculoskeletal disorder [Recovered/Resolved]
  - Dysgraphia [Recovering/Resolving]
  - Speech disorder [Recovered/Resolved]
  - Pneumocephalus [Recovered/Resolved]
  - Procedural complication [Recovered/Resolved]

NARRATIVE: CASE EVENT DATE: 20240701
